FAERS Safety Report 9370938 (Version 2)
Quarter: 2013Q3

REPORT INFORMATION
  Report Type: Spontaneous
  Country: US (occurrence: US)
  Receive Date: 20130627
  Receipt Date: 20130710
  Transmission Date: 20140515
  Serious: Yes (Other)
  Sender: FDA-Public Use
  Company Number: US-AMGEN-USASP2013044106

PATIENT
  Age: 56 Year
  Sex: Female
  Weight: 73 kg

DRUGS (8)
  1. PROLIA [Suspect]
     Indication: OSTEOPOROSIS
     Dosage: 60 MG, Q6MO
     Route: 058
     Dates: start: 2010, end: 2013
  2. LEVOXYL [Concomitant]
     Indication: HYPOTHYROIDISM
     Dosage: 88 MUG, QD
     Route: 048
  3. ADVIL                              /00044201/ [Concomitant]
     Dosage: UNK UNK, AS NECESSARY
     Route: 048
  4. CALCIUM +VIT D [Concomitant]
     Dosage: 1200 MG, QD, 1 TABLET
     Route: 048
  5. ZITHROMAX Z-PAK [Concomitant]
     Dosage: 250 MG, TABLET
  6. FORTEO [Concomitant]
     Dosage: 20 MUG, UNK
  7. ALEVE [Concomitant]
  8. INSULIN [Concomitant]

REACTIONS (4)
  - Tendonitis [Unknown]
  - Atypical femur fracture [Not Recovered/Not Resolved]
  - Plantar fasciitis [Unknown]
  - Arthralgia [Unknown]
